FAERS Safety Report 25108910 (Version 1)
Quarter: 2025Q1

REPORT INFORMATION
  Report Type: Spontaneous
  Country: US (occurrence: US)
  Receive Date: 20250322
  Receipt Date: 20250322
  Transmission Date: 20250409
  Serious: Yes (Hospitalization, Other)
  Sender: EXELA PHARMA SCIENCES
  Company Number: US-EXELAPHARMA-2025EXLA00019

PATIENT
  Age: 21 Year
  Sex: Female

DRUGS (1)
  1. MAGNESIUM SULFATE [Suspect]
     Active Substance: MAGNESIUM SULFATE
     Indication: Seizure prophylaxis
     Route: 042

REACTIONS (7)
  - Hypoaldosteronism [Not Recovered/Not Resolved]
  - Hyperkalaemia [Recovering/Resolving]
  - Somnolence [Recovered/Resolved]
  - Electrocardiogram T wave peaked [Unknown]
  - Exposure during pregnancy [Unknown]
  - Respiratory rate decreased [Recovered/Resolved]
  - Hypermagnesaemia [Recovered/Resolved]
